FAERS Safety Report 23571025 (Version 2)
Quarter: 2024Q2

REPORT INFORMATION
  Report Type: Spontaneous
  Country: IT (occurrence: IT)
  Receive Date: 20240227
  Receipt Date: 20240404
  Transmission Date: 20240716
  Serious: Yes (Death, Hospitalization, Other)
  Sender: FDA-Public Use
  Company Number: None

PATIENT
  Age: 42 Year
  Sex: Male

DRUGS (5)
  1. ENTECAVIR [Suspect]
     Active Substance: ENTECAVIR
     Indication: Hepatitis B
     Dosage: 0.5 MG, QD
     Route: 065
  2. MYCOPHENOLATE MOFETIL [Suspect]
     Active Substance: MYCOPHENOLATE MOFETIL
     Indication: Condition aggravated
     Dosage: 1000 MG
     Route: 065
  3. MYCOPHENOLATE MOFETIL [Suspect]
     Active Substance: MYCOPHENOLATE MOFETIL
     Indication: General physical health deterioration
     Dosage: 2, QD
     Route: 065
  4. PEMBROLIZUMAB [Suspect]
     Active Substance: PEMBROLIZUMAB
     Indication: Thymoma
     Dosage: 2 MILLIGRAM/KILOGRAM, EVERY 21
     Route: 065
  5. PEMBROLIZUMAB [Suspect]
     Active Substance: PEMBROLIZUMAB
     Indication: Metastatic neoplasm

REACTIONS (12)
  - Immune-mediated hepatitis [Fatal]
  - Drug ineffective [Fatal]
  - Multiple organ dysfunction syndrome [Fatal]
  - Hepatorenal syndrome [Fatal]
  - Thrombocytopenia [Unknown]
  - Hepatotoxicity [Unknown]
  - Lymphocytosis [Recovered/Resolved]
  - Immune-mediated thyroiditis [Unknown]
  - Thyroid disorder [Unknown]
  - Hepatotoxicity [Unknown]
  - Immune thrombocytopenia [Not Recovered/Not Resolved]
  - Off label use [Unknown]
